FAERS Safety Report 22055626 (Version 1)
Quarter: 2023Q1

REPORT INFORMATION
  Report Type: Report from Study
  Country: ES (occurrence: ES)
  Receive Date: 20230302
  Receipt Date: 20230302
  Transmission Date: 20230418
  Serious: Yes (Other)
  Sender: FDA-Public Use
  Company Number: ES-GLAXOSMITHKLINE-ES2023GSK033539

PATIENT

DRUGS (6)
  1. SOTROVIMAB [Suspect]
     Active Substance: SOTROVIMAB
     Indication: Pneumonia
     Dosage: UNK
     Dates: start: 20220119
  2. SOTROVIMAB [Suspect]
     Active Substance: SOTROVIMAB
     Indication: COVID-19
  3. HYPERIMMUNE PLASMA COVID 19 [Concomitant]
     Indication: Pneumonia
     Dosage: UNK
     Dates: start: 20220128
  4. HYPERIMMUNE PLASMA COVID 19 [Concomitant]
     Indication: COVID-19
  5. REMDESIVIR [Concomitant]
     Active Substance: REMDESIVIR
     Indication: Pneumonia
     Dosage: UNK
     Dates: start: 20220116
  6. REMDESIVIR [Concomitant]
     Active Substance: REMDESIVIR
     Indication: COVID-19
     Dosage: UNK
     Dates: start: 20220119

REACTIONS (3)
  - Pathogen resistance [Unknown]
  - Viral mutation identified [Unknown]
  - Drug resistance [Unknown]
